FAERS Safety Report 15423799 (Version 1)
Quarter: 2018Q3

REPORT INFORMATION
  Report Type: Spontaneous
  Country: US (occurrence: US)
  Receive Date: 20180925
  Receipt Date: 20180925
  Transmission Date: 20181010
  Serious: Yes (Other)
  Sender: FDA-Public Use
  Company Number: US-DRREDDYS-USA/USA/18/0104052

PATIENT
  Age: 48 Year
  Sex: Male

DRUGS (3)
  1. DIVALPROEX SODIUM. [Suspect]
     Active Substance: DIVALPROEX SODIUM
     Indication: MYOCLONUS
     Route: 065
  2. CLONAZEPAM. [Suspect]
     Active Substance: CLONAZEPAM
     Indication: MYOCLONUS
  3. LEVETIRACETAM. [Suspect]
     Active Substance: LEVETIRACETAM
     Indication: MYOCLONUS
     Route: 065

REACTIONS (7)
  - Confusional state [Unknown]
  - Acute kidney injury [Unknown]
  - Condition aggravated [Unknown]
  - Cognitive disorder [Unknown]
  - Metabolic disorder [Unknown]
  - Hepatic enzyme increased [Unknown]
  - Myoclonus [Unknown]
